FAERS Safety Report 8459262-6 (Version None)
Quarter: 2012Q2

REPORT INFORMATION
  Report Type: 
  Country: None (occurrence: None)
  Receive Date: 20120622
  Receipt Date: 20120608
  Transmission Date: 20120825
  Serious: Yes (Other)
  Sender: FDA-Public Use
  Company Number: GB-WATSON-2012-10275

PATIENT
  Age: 36 Year
  Sex: Female
  Weight: 91.9 kg

DRUGS (3)
  1. ACETAMINOPHEN AND CODEINE PHOSPHATE [Concomitant]
     Indication: PAIN
     Dosage: 2 QDS 30/500
     Route: 065
  2. GABAPENTIN [Suspect]
     Indication: ULCER
     Dosage: 300 MG, TID
     Route: 065
     Dates: start: 20110712, end: 20110826
  3. GABAPENTIN [Suspect]
     Indication: PAIN
     Dosage: UNKNOWN
     Route: 065

REACTIONS (1)
  - ABORTION SPONTANEOUS [None]
